FAERS Safety Report 9909135 (Version 1)
Quarter: 2014Q1

REPORT INFORMATION
  Report Type: Spontaneous
  Country: US (occurrence: US)
  Receive Date: 20140219
  Receipt Date: 20140219
  Transmission Date: 20141002
  Serious: No
  Sender: FDA-Public Use
  Company Number: US-TEVA-463542USA

PATIENT
  Age: 21 Year
  Sex: Female
  Weight: 108.51 kg

DRUGS (3)
  1. PARAGARD 380A [Suspect]
     Indication: CONTRACEPTION
     Route: 015
     Dates: start: 20131212, end: 20140208
  2. COUMADIN [Concomitant]
     Indication: PRODUCT USED FOR UNKNOWN INDICATION
     Dosage: 2.5 MILLIGRAM DAILY;
  3. ZOLOFT [Concomitant]
     Indication: DEPRESSION
     Dosage: 50 MILLIGRAM DAILY;
     Route: 048

REACTIONS (3)
  - Blood glucose increased [Unknown]
  - Menstruation delayed [Not Recovered/Not Resolved]
  - Device expulsion [Recovered/Resolved]
